FAERS Safety Report 4275103-5 (Version None)
Quarter: 2004Q1

REPORT INFORMATION
  Report Type: 
  Country: None (occurrence: None)
  Receive Date: 20040116
  Receipt Date: 20040105
  Transmission Date: 20041129
  Serious: Yes (Hospitalization)
  Sender: FDA-Public Use
  Company Number: AMAN20040001

PATIENT
  Age: 63 Year
  Sex: Female

DRUGS (4)
  1. MANTADIX (SAME AS NDA 18-101) 100 MG [Suspect]
     Dosage: CAPS, UNK; PO
     Route: 048
     Dates: start: 20031106, end: 20030128
  2. RIBAVIRIN [Suspect]
     Dosage: UNK, UNK; PO
     Route: 048
     Dates: start: 20021106, end: 20030128
  3. INTERFERON ALFA [Suspect]
     Dosage: UNK, UNK; SC
     Route: 058
     Dates: start: 20031106, end: 20030123
  4. ... [Concomitant]

REACTIONS (6)
  - DERMATITIS BULLOUS [None]
  - DERMATITIS EXFOLIATIVE [None]
  - EOSINOPHILIA [None]
  - PRURITUS [None]
  - PYREXIA [None]
  - RASH PUSTULAR [None]
